FAERS Safety Report 24126493 (Version 1)
Quarter: 2024Q3

REPORT INFORMATION
  Report Type: Spontaneous
  Country: US (occurrence: US)
  Receive Date: 20240723
  Receipt Date: 20240723
  Transmission Date: 20241017
  Serious: No
  Sender: PFIZER
  Company Number: US-PFIZER INC-PV202400095576

PATIENT
  Age: 69 Year
  Sex: Female

DRUGS (2)
  1. TUKYSA [Interacting]
     Active Substance: TUCATINIB
     Dosage: UNK
  2. TRAMADOL [Interacting]
     Active Substance: TRAMADOL\TRAMADOL HYDROCHLORIDE
     Dosage: ONCE EVERY 3 TO 4 DAYS AS NEEDED

REACTIONS (1)
  - Drug interaction [Unknown]
